FAERS Safety Report 19712809 (Version 1)
Quarter: 2021Q3

REPORT INFORMATION
  Report Type: Report from Study
  Country: US (occurrence: US)
  Receive Date: 20210817
  Receipt Date: 20210817
  Transmission Date: 20211014
  Serious: Yes (Hospitalization, Other)
  Sender: FDA-Public Use
  Company Number: US-JAZZ-2021-US-003769

PATIENT
  Age: 75 Year
  Sex: Female

DRUGS (7)
  1. MUCINEX [Concomitant]
     Active Substance: GUAIFENESIN
  2. TUMS [Concomitant]
     Active Substance: CALCIUM CARBONATE
     Indication: DYSPEPSIA
  3. IBUPROFEN. [Concomitant]
     Active Substance: IBUPROFEN
     Indication: ARTHRALGIA
  4. LURBINECTEDIN [Suspect]
     Active Substance: LURBINECTEDIN
     Indication: SMALL CELL LUNG CANCER
     Dosage: UNK
     Dates: start: 202005
  5. ALBUTEROL [SALBUTAMOL] [Concomitant]
     Active Substance: ALBUTEROL
     Indication: ASTHMA
  6. IBUPROFEN. [Concomitant]
     Active Substance: IBUPROFEN
     Indication: BONE PAIN
  7. NEULASTA [Concomitant]
     Active Substance: PEGFILGRASTIM

REACTIONS (20)
  - Swelling face [Unknown]
  - Chest pain [Unknown]
  - Paraesthesia [Recovered/Resolved]
  - Diarrhoea [Unknown]
  - Contusion [Unknown]
  - Fatigue [Unknown]
  - Erythema [Unknown]
  - Dizziness [Unknown]
  - Pain [Recovered/Resolved]
  - Tenderness [Unknown]
  - Bone pain [Recovered/Resolved]
  - Pain in extremity [Unknown]
  - Pneumonia [Recovered/Resolved]
  - Frustration tolerance decreased [Unknown]
  - Bronchitis [Recovered/Resolved]
  - Pruritus [Unknown]
  - Malaise [Unknown]
  - Musculoskeletal chest pain [Unknown]
  - Constipation [Unknown]
  - Nausea [Unknown]

NARRATIVE: CASE EVENT DATE: 202005
